FAERS Safety Report 22122561 (Version 2)
Quarter: 2023Q2

REPORT INFORMATION
  Report Type: Spontaneous
  Country: MX (occurrence: MX)
  Receive Date: 20230321
  Receipt Date: 20230510
  Transmission Date: 20230722
  Serious: Yes (Hospitalization, Other)
  Sender: FDA-Public Use
  Company Number: MX-LUNDBECK-DKLU3059790

PATIENT
  Age: 14 Year
  Sex: Female
  Weight: 26 kg

DRUGS (2)
  1. CLOBAZAM [Suspect]
     Active Substance: CLOBAZAM
     Indication: Epilepsy
     Route: 048
     Dates: start: 2021
  2. CLOBAZAM [Suspect]
     Active Substance: CLOBAZAM
     Route: 048
     Dates: start: 2021

REACTIONS (4)
  - Pneumonia [Unknown]
  - Suspected COVID-19 [Unknown]
  - Seizure [Unknown]
  - Weight decreased [Unknown]

NARRATIVE: CASE EVENT DATE: 20230301
